FAERS Safety Report 14793879 (Version 1)
Quarter: 2018Q2

REPORT INFORMATION
  Report Type: Spontaneous
  Country: US (occurrence: US)
  Receive Date: 20180423
  Receipt Date: 20180423
  Transmission Date: 20180711
  Serious: No
  Sender: FDA-Public Use
  Company Number: US-ELI_LILLY_AND_COMPANY-US201804008581

PATIENT
  Age: 48 Year
  Sex: Female

DRUGS (1)
  1. TRULICITY [Suspect]
     Active Substance: DULAGLUTIDE
     Indication: INSULIN RESISTANCE
     Dosage: 1.5 MG, UNKNOWN
     Route: 058
     Dates: start: 20170716

REACTIONS (3)
  - Nausea [Recovered/Resolved]
  - Intercepted product storage error [Unknown]
  - Vomiting [Recovered/Resolved]

NARRATIVE: CASE EVENT DATE: 20170717
